FAERS Safety Report 16476421 (Version 1)
Quarter: 2019Q2

REPORT INFORMATION
  Report Type: Report from Study
  Country: FR (occurrence: FR)
  Receive Date: 20190626
  Receipt Date: 20190626
  Transmission Date: 20190711
  Serious: Yes (Congenital Anomaly)
  Sender: FDA-Public Use
  Company Number: PHHO2019FR006742

PATIENT
  Sex: Male

DRUGS (1)
  1. AMN107 [Suspect]
     Active Substance: NILOTINIB
     Indication: CHRONIC MYELOID LEUKAEMIA
     Dosage: 600 MG, UNK (FETAL DRUG EXPOSURE VIA FATHER)
     Route: 050
     Dates: start: 20141218

REACTIONS (2)
  - Exposure via father [Unknown]
  - Hypospadias [Unknown]
